FAERS Safety Report 8552404-3 (Version None)
Quarter: 2012Q3

REPORT INFORMATION
  Report Type: 
  Country: None (occurrence: None)
  Receive Date: 20120731
  Receipt Date: 20120720
  Transmission Date: 20120928
  Serious: No
  Sender: FDA-Public Use
  Company Number: JP-JNJFOC-20101200632

PATIENT
  Sex: Male

DRUGS (17)
  1. MORPHINE HYDROCHLORIDE [Concomitant]
     Route: 048
     Dates: start: 20101024
  2. MORPHINE HYDROCHLORIDE [Concomitant]
     Route: 048
     Dates: start: 20100501
  3. TRAMADOL HYDROCHLORIDE [Concomitant]
     Route: 065
     Dates: start: 20101227
  4. MORPHINE HYDROCHLORIDE [Concomitant]
     Route: 048
     Dates: start: 20100508
  5. ALENDRONATE SODIUM [Concomitant]
     Route: 048
     Dates: start: 20081031
  6. MORPHINE HYDROCHLORIDE [Concomitant]
     Route: 048
     Dates: start: 20100424
  7. MORPHINE HYDROCHLORIDE [Concomitant]
     Route: 048
     Dates: start: 20110424
  8. NORTRIPTYLINE HCL [Concomitant]
     Route: 048
     Dates: start: 20091104, end: 20100922
  9. PRAMIPEXOLE DIHYCHLORIDE [Concomitant]
     Route: 065
     Dates: start: 20101023
  10. ZOLPIDEM [Concomitant]
     Route: 048
     Dates: start: 20101110
  11. FENTANYL-100 [Suspect]
     Indication: PAIN
     Route: 062
     Dates: start: 20100424
  12. MORPHINE HYDROCHLORIDE [Concomitant]
     Indication: PAIN
     Route: 048
     Dates: start: 20100515
  13. ONEALFA [Concomitant]
     Route: 048
     Dates: start: 20081031, end: 20100922
  14. MELDEST [Concomitant]
     Indication: PAIN
     Route: 048
     Dates: start: 20071214, end: 20100922
  15. MORPHINE HYDROCHLORIDE [Concomitant]
     Route: 048
     Dates: start: 20100522
  16. FLURBIPROFEN [Concomitant]
     Route: 065
  17. LIDOCAINE [Concomitant]
     Route: 065

REACTIONS (2)
  - RESTLESS LEGS SYNDROME [None]
  - DRUG PRESCRIBING ERROR [None]
